FAERS Safety Report 10373708 (Version 1)
Quarter: 2014Q1

REPORT INFORMATION
  Report Type: Spontaneous
  Country: US (occurrence: None)
  Receive Date: 20140306
  Receipt Date: 20140306
  Transmission Date: 20141002
  Serious: Yes (Other)
  Sender: FDA-Public Use
  Company Number: 163-21880-13021629

PATIENT
  Age: 75 Year
  Sex: Male
  Weight: 80.3 kg

DRUGS (10)
  1. REVLIMID (LENALIDOMIDE) (CAPSULES) [Suspect]
     Indication: PLASMA CELL MYELOMA
     Dosage: 10 MG, 21 IN 21 D, PO
     Route: 048
     Dates: start: 20120109, end: 20120926
  2. CALCIUM ACETATE (CALCIUM ACETATE) (CAPSULES) [Concomitant]
  3. ASPIRIN (ENTERIC-COATED TABLET) [Concomitant]
  4. FIBER (POLYCARBOPHIL CALCIUM) (CAPSULES) [Concomitant]
  5. VALACYCLOVIR HCL (VALACICLOVIR HYDROCHLORIDE) (TABLETS) [Concomitant]
  6. DEXAMETHASONE (DEXAMETHASONE) (TABLETS) [Concomitant]
  7. SIMVASTATIN (SIMVASTATIN) (TABLETS) [Concomitant]
  8. DICLOFENAC SODIUM (DICLOFENAC SODIUM) (TABLETS) [Concomitant]
  9. ALLOPURINOL (ALLOPURINOL) (TABLETS) [Concomitant]
  10. TIMOLOL MALEATE (TIMOLOL MALEATE) (TABLETS) [Concomitant]

REACTIONS (1)
  - Deep vein thrombosis [None]
